FAERS Safety Report 5923845-5 (Version None)
Quarter: 2008Q4

REPORT INFORMATION
  Report Type: 
  Country: None (occurrence: None)
  Receive Date: 20081020
  Receipt Date: 20081010
  Transmission Date: 20090506
  Serious: Yes (Hospitalization)
  Sender: FDA-Public Use
  Company Number: US-ABBOTT-08P-163-0481863-00

PATIENT
  Sex: Female

DRUGS (3)
  1. LUPRON DEPOT [Suspect]
     Indication: OVARIAN CYST
     Route: 030
     Dates: start: 20080724, end: 20080724
  2. LUPRON DEPOT [Suspect]
     Indication: PAIN
  3. LEVOTHYROXINE SODIUM [Concomitant]
     Indication: THYROID DISORDER
     Route: 048

REACTIONS (4)
  - ACTIVITIES OF DAILY LIVING IMPAIRED [None]
  - HEADACHE [None]
  - HEMIPARESIS [None]
  - VISION BLURRED [None]
